FAERS Safety Report 22659395 (Version 1)
Quarter: 2023Q2

REPORT INFORMATION
  Report Type: Spontaneous
  Country: DE (occurrence: DE)
  Receive Date: 20230630
  Receipt Date: 20230630
  Transmission Date: 20230722
  Serious: Yes (Other)
  Sender: FDA-Public Use
  Company Number: DE-002147023-NVSC2023DE137505

PATIENT

DRUGS (6)
  1. BEVACIZUMAB [Suspect]
     Active Substance: BEVACIZUMAB
     Indication: Bronchial carcinoma
     Dosage: UNK
     Route: 065
     Dates: start: 200905, end: 200909
  2. BEVACIZUMAB [Suspect]
     Active Substance: BEVACIZUMAB
     Indication: Adenocarcinoma
  3. PEMETREXED [Suspect]
     Active Substance: PEMETREXED
     Indication: Bronchial carcinoma
     Dosage: UNK
     Route: 065
     Dates: start: 200905, end: 200909
  4. PEMETREXED [Suspect]
     Active Substance: PEMETREXED
     Indication: Adenocarcinoma
     Dosage: UNK
     Route: 065
     Dates: start: 200910, end: 201001
  5. CARBOPLATIN [Suspect]
     Active Substance: CARBOPLATIN
     Indication: Adenocarcinoma
     Dosage: UNK
     Route: 065
     Dates: start: 200905, end: 200909
  6. CARBOPLATIN [Suspect]
     Active Substance: CARBOPLATIN
     Indication: Bronchial carcinoma

REACTIONS (3)
  - Lymphangiosis carcinomatosa [Unknown]
  - Renal failure [Recovering/Resolving]
  - Metastases to pleura [Unknown]

NARRATIVE: CASE EVENT DATE: 20100101
